FAERS Safety Report 10596236 (Version 3)
Quarter: 2015Q2

REPORT INFORMATION
  Report Type: Spontaneous
  Country: US (occurrence: US)
  Receive Date: 20141120
  Receipt Date: 20150529
  Transmission Date: 20150821
  Serious: Yes (Hospitalization, Disabling, Other)
  Sender: FDA-Public Use
  Company Number: US-GLAXOSMITHKLINE-US2014GSK023954

PATIENT
  Age: 66 Year
  Sex: Female
  Weight: 68.27 kg

DRUGS (5)
  1. PLAQUENIL [Suspect]
     Active Substance: HYDROXYCHLOROQUINE SULFATE
     Indication: SYSTEMIC LUPUS ERYTHEMATOSUS
     Dosage: UNK
     Dates: start: 2013
  2. BENLYSTA [Suspect]
     Active Substance: BELIMUMAB
     Indication: SYSTEMIC LUPUS ERYTHEMATOSUS
     Dosage: 10 MG/KG, UNK
     Route: 042
     Dates: start: 2013
  3. PREDNISONE. [Suspect]
     Active Substance: PREDNISONE
     Dosage: 5 MG, QD
  4. CELLCEPT [Suspect]
     Active Substance: MYCOPHENOLATE MOFETIL\MYCOPHENOLATE MOFETIL HYDROCHLORIDE
     Indication: SYSTEMIC LUPUS ERYTHEMATOSUS
     Dosage: 2500 MG, 1D
     Route: 048
     Dates: start: 2013
  5. PREDNISONE. [Suspect]
     Active Substance: PREDNISONE
     Indication: SYSTEMIC LUPUS ERYTHEMATOSUS
     Dosage: 20 MG, 1D
     Route: 048
     Dates: start: 2013

REACTIONS (3)
  - Abscess [Recovering/Resolving]
  - Cytomegalovirus colitis [Recovered/Resolved with Sequelae]
  - Colostomy [Recovering/Resolving]
